FAERS Safety Report 9782956 (Version 1)
Quarter: 2013Q4

REPORT INFORMATION
  Report Type: Spontaneous
  Country: US (occurrence: None)
  Receive Date: 20131223
  Receipt Date: 20131223
  Transmission Date: 20140711
  Serious: Yes (Hospitalization, Other)
  Sender: FDA-Public Use
  Company Number: EUS-2011-00774

PATIENT
  Age: 3 Year
  Sex: Male

DRUGS (12)
  1. ERWINASE (ASPARAGINASE) [Suspect]
     Indication: ACUTE LYMPHOCYTIC LEUKAEMIA
     Dosage: 18000 IU, CYCLIC 1 ON 01, 03, 05 + 07 JUL 2011, INTRASMUSCULAR
     Route: 030
     Dates: start: 20110701, end: 20110707
  2. DEXAMETHASONE (DEXAMETHASONE) [Concomitant]
  3. BERNARDYL (DIPHENHYDRAMINE HYDROCHLORIDE) (DIPHENHYDRAMINE HYDROCHLORIDE) [Concomitant]
  4. DASATINB (DASATININE) [Concomitant]
  5. ETOPOSIDE (ETOPOSIDE) [Concomitant]
  6. HYDROCORTISONE (HYDROCORTISONE) [Concomitant]
  7. ZOFRAN (ONDANSETRON) (ONDANSETRON) [Concomitant]
  8. IFEX (IFOSFAMIDE) (IFOSFAMIDE) [Concomitant]
  9. ZANTAC (RANITIDINE) (RANITIDINE) [Concomitant]
  10. MESNA (MESNA) [Concomitant]
  11. SEPTRA DS (BACTRIM) [Concomitant]
  12. OXYCODONE (OXYCODONE) [Concomitant]

REACTIONS (3)
  - Aspartate aminotransferase increased [None]
  - Alanine aminotransferase increased [None]
  - Clostridial infection [None]
